FAERS Safety Report 18534218 (Version 1)
Quarter: 2020Q4

REPORT INFORMATION
  Report Type: Spontaneous
  Country: US (occurrence: US)
  Receive Date: 20201123
  Receipt Date: 20201123
  Transmission Date: 20210114
  Serious: Yes (Hospitalization)
  Sender: FDA-Public Use
  Company Number: None

PATIENT
  Age: 90 Year
  Sex: Male
  Weight: 76.5 kg

DRUGS (13)
  1. CAPECITABINE. [Suspect]
     Active Substance: CAPECITABINE
     Indication: COLON CANCER
     Dates: start: 20201117
  2. CAPECITABINE. [Suspect]
     Active Substance: CAPECITABINE
     Indication: COLON CANCER
     Dates: start: 20201117
  3. FLOMAX [Concomitant]
     Active Substance: TAMSULOSIN HYDROCHLORIDE
  4. FUROSEMIDE. [Concomitant]
     Active Substance: FUROSEMIDE
  5. DILTIAZEM. [Concomitant]
     Active Substance: DILTIAZEM
  6. IRON [Concomitant]
     Active Substance: IRON
  7. MULTIVITAMIN [Concomitant]
     Active Substance: VITAMINS
  8. ALBUTEROL. [Concomitant]
     Active Substance: ALBUTEROL
  9. PRAVACHOL [Concomitant]
     Active Substance: PRAVASTATIN SODIUM
  10. ELIQUIS [Concomitant]
     Active Substance: APIXABAN
  11. FINASTERIDE. [Concomitant]
     Active Substance: FINASTERIDE
  12. MYRBETRIQ [Concomitant]
     Active Substance: MIRABEGRON
  13. POTASSIUM CHLORIDE. [Concomitant]
     Active Substance: POTASSIUM CHLORIDE

REACTIONS (4)
  - Blood urine present [None]
  - Thrombosis [None]
  - Urinary retention [None]
  - Urethral obstruction [None]

NARRATIVE: CASE EVENT DATE: 20201117
